FAERS Safety Report 18650622 (Version 1)
Quarter: 2020Q4

REPORT INFORMATION
  Report Type: Spontaneous
  Country: US (occurrence: US)
  Receive Date: 20201223
  Receipt Date: 20201223
  Transmission Date: 20210114
  Serious: Yes (Other)
  Sender: FDA-Public Use
  Company Number: US-AMGEN-USASP2020205378

PATIENT
  Sex: Female

DRUGS (1)
  1. PROLIA [Suspect]
     Active Substance: DENOSUMAB
     Indication: PRODUCT USED FOR UNKNOWN INDICATION
     Dosage: UNK UNK, Q6MO
     Route: 065

REACTIONS (7)
  - Complication associated with device [Unknown]
  - Aphthous ulcer [Unknown]
  - Neuropathy peripheral [Unknown]
  - Chondropathy [Unknown]
  - Tooth extraction [Unknown]
  - Inflammation [Recovered/Resolved]
  - Impaired healing [Unknown]
